FAERS Safety Report 6048097-X (Version None)
Quarter: 2009Q1

REPORT INFORMATION
  Report Type: 
  Country: None (occurrence: None)
  Receive Date: 20090123
  Receipt Date: 20090120
  Transmission Date: 20090719
  Serious: Yes (Other)
  Sender: FDA-Public Use
  Company Number: US-ASTRAZENECA-2008UW06941

PATIENT
  Sex: Female
  Weight: 77.1 kg

DRUGS (5)
  1. SEROQUEL [Suspect]
     Indication: SLEEP DISORDER
     Route: 048
     Dates: start: 20010901, end: 20070701
  2. SEROQUEL [Suspect]
     Indication: BIPOLAR DISORDER
     Route: 048
     Dates: start: 20010901, end: 20070701
  3. ZYPREXA [Concomitant]
     Dates: start: 19860101
  4. LITHIUM [Concomitant]
  5. CLONAZEPAM [Concomitant]

REACTIONS (2)
  - DIABETES MELLITUS [None]
  - NEOPLASM [None]
